FAERS Safety Report 8030106-X (Version None)
Quarter: 2012Q1

REPORT INFORMATION
  Report Type: 
  Country: None (occurrence: None)
  Receive Date: 20120109
  Receipt Date: 20111228
  Transmission Date: 20120608
  Serious: Yes (Death)
  Sender: FDA-Public Use
  Company Number: JP-UCBSA-048495

PATIENT
  Age: 79 Year
  Sex: Male
  Weight: 41.2 kg

DRUGS (10)
  1. KEPPRA [Suspect]
     Indication: COMPLEX PARTIAL SEIZURES
     Route: 048
     Dates: start: 20111127, end: 20111224
  2. SENNOSIDE [Concomitant]
     Indication: CONSTIPATION
     Dosage: DAILY DOSE:12 MG
     Route: 048
     Dates: end: 20111118
  3. BAKTAR [Concomitant]
     Indication: PROPHYLAXIS
     Dosage: DAILY DOSE: 1 G
     Route: 048
     Dates: end: 20111118
  4. MAGNESIUM OXIDE [Concomitant]
     Indication: CONSTIPATION
     Dosage: DAILY DOSE:1.5 GM
     Route: 048
     Dates: end: 20111118
  5. BETAMETHASONE [Concomitant]
     Indication: BRAIN NEOPLASM
     Dosage: DAILY DOSE:1 MG
     Route: 048
     Dates: end: 20111224
  6. DEPAKENE [Concomitant]
     Indication: COMPLEX PARTIAL SEIZURES
     Dosage: DAILY DOSE:600 MG
     Route: 048
     Dates: end: 20111224
  7. MUCOSIL-10 [Concomitant]
     Indication: COUGH
     Dosage: DAILY DOSE:45 MG
     Route: 048
     Dates: start: 20111121, end: 20111224
  8. LANSOPRAZOLE [Concomitant]
     Indication: GASTRITIS
     Dosage: DAILY DOSE:15 MG
     Route: 048
     Dates: end: 20111224
  9. KEPPRA [Suspect]
     Route: 048
     Dates: start: 20111118, end: 20111126
  10. ROHYPNOL [Concomitant]
     Indication: INSOMNIA
     Dosage: DAILY DOSE:1 MG
     Route: 048
     Dates: end: 20111118

REACTIONS (1)
  - DEATH [None]
